FAERS Safety Report 23648144 (Version 1)
Quarter: 2024Q1

REPORT INFORMATION
  Report Type: Spontaneous
  Country: US (occurrence: None)
  Receive Date: 20240318
  Receipt Date: 20240318
  Transmission Date: 20240410
  Serious: Yes (Other)
  Sender: FDA-Public Use
  Company Number: None

PATIENT
  Age: 72 Year
  Sex: Female
  Weight: 74.25 kg

DRUGS (7)
  1. CLARISCAN [Suspect]
     Active Substance: GADOTERATE MEGLUMINE
     Indication: Scan with contrast
     Dosage: OTHER FREQUENCY : 2X, 24 HOURS APART;?
     Route: 042
     Dates: start: 20230530, end: 20230531
  2. ALDACTONE [Concomitant]
     Active Substance: SPIRONOLACTONE
  3. ATENOLOL [Concomitant]
     Active Substance: ATENOLOL
  4. CLONIDINE [Concomitant]
     Active Substance: CLONIDINE
  5. CALCITRIOL [Concomitant]
     Active Substance: CALCITRIOL
  6. ROSUVASTATIN [Concomitant]
     Active Substance: ROSUVASTATIN
  7. TYLENOL [Concomitant]
     Active Substance: ACETAMINOPHEN

REACTIONS (22)
  - Blood creatinine increased [None]
  - Glomerular filtration rate decreased [None]
  - Hormone level abnormal [None]
  - Blood parathyroid hormone abnormal [None]
  - Nausea [None]
  - Dizziness [None]
  - Flank pain [None]
  - Insomnia [None]
  - Disturbance in attention [None]
  - Tachyphrenia [None]
  - Dysgeusia [None]
  - Fatigue [None]
  - Vertigo [None]
  - Renal disorder [None]
  - Influenza immunisation [None]
  - Immunisation reaction [None]
  - Pain [None]
  - Asthenia [None]
  - Tremor [None]
  - Memory impairment [None]
  - Visual impairment [None]
  - Migraine [None]

NARRATIVE: CASE EVENT DATE: 20230531
